FAERS Safety Report 16373838 (Version 2)
Quarter: 2019Q3

REPORT INFORMATION
  Report Type: Spontaneous
  Country: US (occurrence: US)
  Receive Date: 20190530
  Receipt Date: 20190717
  Transmission Date: 20191004
  Serious: Yes (Hospitalization, Other)
  Sender: FDA-Public Use
  Company Number: US-ASTRAZENECA-2019SE77977

PATIENT
  Age: 851 Month
  Sex: Male

DRUGS (11)
  1. DILTAZEM [Concomitant]
     Dates: start: 20180421
  2. METFORMIN [Concomitant]
     Active Substance: METFORMIN HYDROCHLORIDE
     Dates: start: 20180421
  3. FUROSEMIDE. [Concomitant]
     Active Substance: FUROSEMIDE
     Dates: start: 20180421
  4. CEFDINIR. [Concomitant]
     Active Substance: CEFDINIR
     Dates: start: 20150512
  5. BISACODYL. [Concomitant]
     Active Substance: BISACODYL
     Dates: start: 20180412
  6. ONGLYZA [Suspect]
     Active Substance: SAXAGLIPTIN HYDROCHLORIDE
     Indication: TYPE 2 DIABETES MELLITUS
     Route: 048
     Dates: start: 201101
  7. METOPROLOL. [Concomitant]
     Active Substance: METOPROLOL
     Dates: start: 20180421
  8. ONGLYZA [Suspect]
     Active Substance: SAXAGLIPTIN HYDROCHLORIDE
     Indication: TYPE 2 DIABETES MELLITUS
     Dosage: 5 MG
     Route: 048
     Dates: start: 20110122, end: 20180411
  9. LOSARTAN. [Concomitant]
     Active Substance: LOSARTAN
     Dates: start: 20180421
  10. GABAPENTIN. [Concomitant]
     Active Substance: GABAPENTIN
     Dates: start: 20170530
  11. AZITHROMYCIN ANHYDROUS. [Concomitant]
     Active Substance: AZITHROMYCIN ANHYDROUS
     Dates: start: 20180404

REACTIONS (5)
  - Cardiac failure [Unknown]
  - Acute left ventricular failure [Unknown]
  - Chronic left ventricular failure [Unknown]
  - Respiratory failure [Unknown]
  - Cardiac failure congestive [Unknown]

NARRATIVE: CASE EVENT DATE: 201612
